FAERS Safety Report 4789667-6 (Version None)
Quarter: 2005Q4

REPORT INFORMATION
  Report Type: 
  Country: None (occurrence: None)
  Receive Date: 20051006
  Receipt Date: 20050415
  Transmission Date: 20060501
  Serious: Yes (Other)
  Sender: FDA-Public Use
  Company Number: 2005AP02307

PATIENT
  Age: 12736 Day
  Sex: Female

DRUGS (9)
  1. QUETIAPINE FUMARATE [Suspect]
     Route: 048
     Dates: start: 20041104, end: 20050301
  2. QUETIAPINE FUMARATE [Suspect]
     Route: 048
     Dates: start: 20050101
  3. LORAZEPAM [Concomitant]
     Indication: ANXIETY
     Route: 048
     Dates: start: 20030101
  4. MOCLOBEMIDE [Concomitant]
     Indication: DEPRESSION
     Route: 048
     Dates: start: 20010101
  5. MOCLOBEMIDE [Concomitant]
     Route: 048
  6. TEMAZEPAM [Concomitant]
     Indication: SLEEP DISORDER
     Dosage: AS REQUIRED AT NIGHT
     Route: 048
     Dates: start: 20010101
  7. MULTIVITE SIX [Concomitant]
     Dosage: 2 TABLETS
  8. PAMOL [Concomitant]
     Dosage: 1 - 2 TABLETS
  9. PROPRANOLOL [Concomitant]
     Indication: ANXIETY
     Dosage: ONE TABLET 3-4 TIMES DAILY

REACTIONS (2)
  - INTENTIONAL SELF-INJURY [None]
  - LIBIDO INCREASED [None]
